FAERS Safety Report 23481473 (Version 2)
Quarter: 2024Q1

REPORT INFORMATION
  Report Type: Spontaneous
  Country: AR (occurrence: AR)
  Receive Date: 20240205
  Receipt Date: 20240313
  Transmission Date: 20240409
  Serious: Yes (Hospitalization)
  Sender: FDA-Public Use
  Company Number: AR-HORIZON THERAPEUTICS-HZN-2024-001437

PATIENT

DRUGS (4)
  1. RAVICTI [Suspect]
     Active Substance: GLYCEROL PHENYLBUTYRATE
     Indication: Argininosuccinate lyase deficiency
     Dosage: 2 ML, TID
     Route: 048
     Dates: start: 20210615
  2. SODIUM BENZOATE [Concomitant]
     Active Substance: SODIUM BENZOATE
     Route: 065
  3. ARGININE [Concomitant]
     Active Substance: ARGININE
     Route: 065
  4. CARNITINE [Concomitant]
     Active Substance: CARNITINE
     Route: 065

REACTIONS (1)
  - Hyperammonaemia [Recovered/Resolved]

NARRATIVE: CASE EVENT DATE: 20240122
